FAERS Safety Report 15871483 (Version 1)
Quarter: 2019Q1

REPORT INFORMATION
  Report Type: Other
  Country: US (occurrence: US)
  Receive Date: 20190126
  Receipt Date: 20190126
  Transmission Date: 20190417
  Serious: No
  Sender: FDA-Public Use
  Company Number: US-ACORDA-ACO_146389_2018

PATIENT
  Age: 57 Year
  Sex: Female

DRUGS (1)
  1. AMPYRA [Suspect]
     Active Substance: DALFAMPRIDINE
     Indication: MULTIPLE SCLEROSIS
     Dosage: 10 MG, BID
     Route: 048
     Dates: start: 20171116

REACTIONS (5)
  - Gastrooesophageal reflux disease [Unknown]
  - Pruritus [Unknown]
  - Dizziness [Unknown]
  - Condition aggravated [Unknown]
  - Skin irritation [Unknown]

NARRATIVE: CASE EVENT DATE: 20171221
